FAERS Safety Report 8673302 (Version 2)
Quarter: 2012Q4

REPORT INFORMATION
  Report Type: 
  Country: US (occurrence: US)
  Receive Date: 20120719
  Receipt Date: 20121001
  Transmission Date: 20130627
  Serious: Yes (Other)
  Sender: FDA-Public Use
  Company Number: US-BAYER-2012-072003

PATIENT
  Age: 73 None
  Sex: Female
  Weight: 56.69 kg

DRUGS (20)
  1. CIPRO [Suspect]
     Indication: URINARY TRACT INFECTION
     Dosage: 500 mg, BID
     Route: 048
  2. CIPRO [Suspect]
     Indication: URINARY TRACT INFECTION
     Dosage: 500 mg, UNK
  3. CIPRO [Suspect]
     Indication: URINARY TRACT INFECTION
     Dosage: UNK
     Route: 042
     Dates: start: 20120124
  4. VYTORIN [Concomitant]
     Dosage: 10/40
  5. PREMARIN [Concomitant]
     Dosage: UNK UNK, BIW
  6. OMEPRAZOLE [Concomitant]
     Dosage: 40 mg, QD
  7. DICYCLOMINE [Concomitant]
     Dosage: 10 mg, PRN
  8. CLONAZEPAM [Concomitant]
     Dosage: 0.5 DF, QD
  9. MULTIVITAMINS [Concomitant]
     Dosage: UNK UNK, QD
  10. CALCIUM CITRATE [Concomitant]
     Dosage: 315 mg, TID
  11. VITAMIN D3 [Concomitant]
     Dosage: 1000 iu, BID
  12. BIOTIN [Concomitant]
     Dosage: 5 mg, QD
  13. FISH OIL [Concomitant]
     Dosage: 1000 mg, QD
  14. B-COMPLEX [VITAMIN B NOS] [Concomitant]
     Dosage: UNK UNK, QD
  15. CO Q10 [Concomitant]
     Dosage: 100 mg, QD
  16. PROBIOTICS [Concomitant]
     Dosage: UNK UNK, QD
  17. VITAMIN B12 [Concomitant]
     Dosage: 1000 mcg
  18. QUERCETIN [Concomitant]
     Dosage: 650 mg, BID
  19. VINPOCETINE [Concomitant]
     Dosage: 10 mg, QD
  20. CRAN-MAX [Concomitant]
     Dosage: 500 mg, QD

REACTIONS (8)
  - Tendon rupture [None]
  - Pain in extremity [Not Recovered/Not Resolved]
  - Oedema peripheral [None]
  - Joint swelling [None]
  - Joint swelling [None]
  - Arthralgia [None]
  - Burning sensation [None]
  - Paraesthesia [None]
